FAERS Safety Report 4864907-3 (Version None)
Quarter: 2005Q4

REPORT INFORMATION
  Report Type: 
  Country: None (occurrence: None)
  Receive Date: 20051201
  Receipt Date: 20050729
  Transmission Date: 20060501
  Serious: No
  Sender: FDA-Public Use
  Company Number: 2005PV000694

PATIENT
  Age: 58 Year
  Sex: Female
  Weight: 75.7507 kg

DRUGS (10)
  1. BYETTA [Suspect]
     Indication: DIABETES MELLITUS NON-INSULIN-DEPENDENT
     Dosage: 5 MCG; BID; SC
     Route: 058
     Dates: start: 20050726
  2. CELEBREX [Concomitant]
  3. ZOLOFT [Concomitant]
  4. PRAVACHOL [Concomitant]
  5. MULTIVITAMIN [Concomitant]
  6. ASPIRIN [Concomitant]
  7. LANTUS [Concomitant]
  8. ACTOS [Concomitant]
  9. METAGLIP [Concomitant]
  10. SULFAMETHOXAZOLE + TRIMETHOPRIM [Concomitant]

REACTIONS (5)
  - BLOOD GLUCOSE DECREASED [None]
  - DIZZINESS [None]
  - FEELING JITTERY [None]
  - INJECTION SITE HAEMORRHAGE [None]
  - NAUSEA [None]
